FAERS Safety Report 25237655 (Version 1)
Quarter: 2025Q2

REPORT INFORMATION
  Report Type: Spontaneous
  Country: US (occurrence: US)
  Receive Date: 20250425
  Receipt Date: 20250425
  Transmission Date: 20250716
  Serious: Yes (Hospitalization, Other)
  Sender: UROGEN PHARMA
  Company Number: US-UROGEN PHARMA LTD.-2025-UGN-000055

PATIENT

DRUGS (5)
  1. JELMYTO [Suspect]
     Active Substance: MITOMYCIN
     Indication: Product used for unknown indication
     Route: 065
     Dates: start: 20250226, end: 20250226
  2. JELMYTO [Suspect]
     Active Substance: MITOMYCIN
     Route: 065
     Dates: start: 20250305, end: 20250305
  3. JELMYTO [Suspect]
     Active Substance: MITOMYCIN
     Route: 065
     Dates: start: 20250312, end: 20250312
  4. JELMYTO [Suspect]
     Active Substance: MITOMYCIN
     Route: 065
     Dates: start: 20250319, end: 20250319
  5. JELMYTO [Suspect]
     Active Substance: MITOMYCIN
     Route: 065
     Dates: start: 20250326, end: 20250326

REACTIONS (1)
  - Urinary bladder haemorrhage [Recovered/Resolved]

NARRATIVE: CASE EVENT DATE: 20250326
